FAERS Safety Report 24061918 (Version 1)
Quarter: 2024Q3

REPORT INFORMATION
  Report Type: Spontaneous
  Country: US (occurrence: US)
  Receive Date: 20240708
  Receipt Date: 20240708
  Transmission Date: 20241017
  Serious: No
  Sender: PFIZER
  Company Number: US-PFIZER INC-PV202300076258

PATIENT
  Age: 84 Year
  Sex: Female
  Weight: 44.45 kg

DRUGS (1)
  1. INLYTA [Suspect]
     Active Substance: AXITINIB
     Indication: Clear cell renal cell carcinoma
     Dosage: TAKE 3 TABLETS (3 MG) TWICE DAILY
     Route: 048

REACTIONS (1)
  - Neoplasm progression [Unknown]
